FAERS Safety Report 21216002 (Version 1)
Quarter: 2022Q3

REPORT INFORMATION
  Report Type: Spontaneous
  Country: US (occurrence: US)
  Receive Date: 20220816
  Receipt Date: 20220816
  Transmission Date: 20221027
  Serious: No
  Sender: FDA-Public Use
  Company Number: US-BRISTOL-MYERS SQUIBB COMPANY-2022-090017

PATIENT
  Age: 70 Year
  Sex: Female

DRUGS (1)
  1. REVLIMID [Suspect]
     Active Substance: LENALIDOMIDE
     Indication: Product used for unknown indication
     Dosage: 1 DF : 1 CAPSULE
     Route: 048
     Dates: start: 20220112

REACTIONS (5)
  - Product dose omission issue [Unknown]
  - Diarrhoea [Unknown]
  - Hypoacusis [Unknown]
  - Ear discomfort [Unknown]
  - Dry skin [Unknown]
